FAERS Safety Report 5606487-0 (Version None)
Quarter: 2008Q1

REPORT INFORMATION
  Report Type: 
  Country: None (occurrence: None)
  Receive Date: 20080129
  Receipt Date: 20080118
  Transmission Date: 20080703
  Serious: Yes (Hospitalization)
  Sender: FDA-Public Use
  Company Number: SE-JNJFOC-20080106422

PATIENT
  Age: 82 Year
  Sex: Female

DRUGS (17)
  1. REMICADE [Suspect]
     Indication: RHEUMATOID ARTHRITIS
     Route: 042
  2. LOSEC MUPS [Concomitant]
     Route: 048
  3. ALVEDON [Concomitant]
     Route: 048
  4. FOSAMAX [Concomitant]
     Route: 048
  5. TERRACORTRIL MED POLYMYXIN B [Concomitant]
  6. FOLACIN [Concomitant]
     Route: 048
  7. CALCEVITA [Concomitant]
     Route: 048
  8. DUROFERON [Concomitant]
     Route: 048
  9. PREDNISOLONE [Concomitant]
     Route: 048
  10. MYCOSTATIN [Concomitant]
     Route: 048
  11. CHLOROQUINE PHOSPHATE [Concomitant]
     Route: 048
  12. DUPHALAC [Concomitant]
     Route: 048
  13. CETIRIZINE HCL [Concomitant]
     Route: 048
  14. DEXOFEN [Concomitant]
     Route: 048
  15. IMOVANE [Concomitant]
     Route: 048
  16. CELEBRA [Concomitant]
     Route: 048
  17. METHOTREXATE [Concomitant]
     Route: 048

REACTIONS (4)
  - FALL [None]
  - FEMUR FRACTURE [None]
  - GASTROENTERITIS [None]
  - URINARY TRACT INFECTION [None]
